FAERS Safety Report 19296736 (Version 3)
Quarter: 2021Q3

REPORT INFORMATION
  Report Type: Spontaneous
  Country: JP (occurrence: JP)
  Receive Date: 20210524
  Receipt Date: 20210720
  Transmission Date: 20211014
  Serious: Yes (Other)
  Sender: FDA-Public Use
  Company Number: JP-TAKEDA-2021TJP025448

PATIENT
  Age: 83 Year
  Sex: Female

DRUGS (8)
  1. TRINTELLIX [Suspect]
     Active Substance: VORTIOXETINE HYDROBROMIDE
     Indication: DEPRESSION
     Dosage: UNK
     Route: 048
     Dates: start: 20210319, end: 20210407
  2. OLMESARTAN [Concomitant]
     Active Substance: OLMESARTAN
     Dosage: UNK
     Route: 065
  3. DAYVIGO [Concomitant]
     Active Substance: LEMBOREXANT
     Dosage: UNK
     Route: 065
  4. ATENOLOL. [Concomitant]
     Active Substance: ATENOLOL
     Dosage: UNK
     Route: 065
  5. NIFEDIPINE. [Concomitant]
     Active Substance: NIFEDIPINE
     Dosage: UNK
     Route: 065
  6. HUMALOG [Concomitant]
     Active Substance: INSULIN LISPRO
     Dosage: UNK
     Route: 065
  7. TRAZENTA [Concomitant]
     Active Substance: LINAGLIPTIN
     Dosage: UNK
     Route: 065
  8. INSULIN GLARGINE [Concomitant]
     Active Substance: INSULIN GLARGINE
     Dosage: UNK
     Route: 065

REACTIONS (1)
  - Inappropriate antidiuretic hormone secretion [Recovered/Resolved]
